FAERS Safety Report 5772441-1 (Version None)
Quarter: 2008Q2

REPORT INFORMATION
  Report Type: 
  Country: None (occurrence: None)
  Receive Date: 20080613
  Receipt Date: 20080603
  Transmission Date: 20081010
  Serious: No
  Sender: FDA-Public Use
  Company Number: US-ELI_LILLY_AND_COMPANY-US200805001190

PATIENT
  Sex: Female
  Weight: 89.796 kg

DRUGS (14)
  1. BYETTA [Suspect]
     Indication: TYPE 2 DIABETES MELLITUS
     Dosage: 5 UG, 2/D
     Route: 058
     Dates: start: 20050801, end: 20050901
  2. BYETTA [Suspect]
     Dosage: 10 UG, 2/D
     Route: 058
     Dates: start: 20050901
  3. LANTUS [Concomitant]
     Indication: BLOOD GLUCOSE ABNORMAL
     Dates: end: 20070101
  4. HUMALOG [Concomitant]
     Indication: BLOOD GLUCOSE ABNORMAL
     Dates: end: 20070101
  5. AMARYL [Concomitant]
     Indication: BLOOD GLUCOSE ABNORMAL
     Dates: end: 20070101
  6. METFORMIN [Concomitant]
     Indication: TYPE 2 DIABETES MELLITUS
     Dosage: 500 MG, EACH EVENING
     Route: 048
  7. OS-CAL [Concomitant]
     Indication: OSTEOPOROSIS
     Dosage: 500 MG, UNK
  8. PROTONIX [Concomitant]
     Indication: GASTROOESOPHAGEAL REFLUX DISEASE
     Dosage: 40 MG, UNK
  9. FOLIC ACID [Concomitant]
     Dosage: 1 MG, UNK
  10. COREG [Concomitant]
     Indication: HYPERTENSION
     Dosage: 3.25 MG, UNK
  11. LISINOPRIL [Concomitant]
     Indication: HYPERTENSION
     Dosage: 5 MG, UNK
  12. LEVOTHYROXINE SODIUM [Concomitant]
     Dosage: 100 UG, UNK
  13. VYTORIN [Concomitant]
     Indication: BLOOD CHOLESTEROL
  14. FUROSEMIDE [Concomitant]
     Indication: HYPERTENSION
     Dosage: 40 MG, UNK

REACTIONS (7)
  - BRONCHITIS [None]
  - CATHETER SITE HAEMATOMA [None]
  - CATHETER SITE HAEMORRHAGE [None]
  - COUGH [None]
  - DECREASED APPETITE [None]
  - HYPERSENSITIVITY [None]
  - PERIPHERAL VASCULAR DISORDER [None]
